FAERS Safety Report 5336943-4 (Version None)
Quarter: 2007Q2

REPORT INFORMATION
  Report Type: 
  Country: None (occurrence: None)
  Receive Date: 20070529
  Receipt Date: 20070517
  Transmission Date: 20071010
  Serious: Yes (Other)
  Sender: FDA-Public Use
  Company Number: GB-ROCHE-499067

PATIENT
  Age: 47 Year
  Sex: Female
  Weight: 104.8 kg

DRUGS (2)
  1. XENICAL [Suspect]
     Indication: OBESITY
     Route: 048
     Dates: start: 20061109, end: 20070417
  2. HRT [Concomitant]
     Indication: MENOPAUSE

REACTIONS (1)
  - DIVERTICULUM [None]
